FAERS Safety Report 9255761 (Version 1)
Quarter: 2013Q2

REPORT INFORMATION
  Report Type: Spontaneous
  Country: DE (occurrence: DE)
  Receive Date: 20130425
  Receipt Date: 20130425
  Transmission Date: 20140414
  Serious: Yes (Hospitalization)
  Sender: FDA-Public Use
  Company Number: GXKR2013DE001604

PATIENT
  Age: 18 Year
  Sex: Male
  Weight: 95 kg

DRUGS (2)
  1. AMOXICILLIN [Suspect]
     Indication: NEUROBORRELIOSIS
     Dosage: 1000 MG, TID
     Route: 048
  2. FLUCONAZOL [Concomitant]
     Indication: NEUROBORRELIOSIS
     Dosage: 200 MG, QD

REACTIONS (1)
  - Psychotic disorder [Unknown]
